FAERS Safety Report 17399788 (Version 1)
Quarter: 2020Q1

REPORT INFORMATION
  Report Type: Spontaneous
  Country: GB (occurrence: GB)
  Receive Date: 20200211
  Receipt Date: 20200211
  Transmission Date: 20200409
  Serious: No
  Sender: FDA-Public Use
  Company Number: GB-ALKEM LABORATORIES LIMITED-GB-ALKEM-2019-07545

PATIENT
  Age: 61 Year
  Sex: Male

DRUGS (7)
  1. FLUOXETINE [Suspect]
     Active Substance: FLUOXETINE HYDROCHLORIDE
     Indication: TRIGEMINAL NEURALGIA
     Dosage: 40 MILLIGRAM, OD
     Route: 065
  2. NORTRIPTYLINE [Suspect]
     Active Substance: NORTRIPTYLINE
     Indication: TRIGEMINAL NEURALGIA
     Dosage: 75 MILLIGRAM, OD
     Route: 065
  3. CO-DYDRAMOL [Suspect]
     Active Substance: ACETAMINOPHEN\DIHYDROCODEINE
     Indication: TRIGEMINAL NEURALGIA
     Dosage: 30/500X2 QID
     Route: 065
  4. TRAMADOL. [Suspect]
     Active Substance: TRAMADOL
     Indication: TRIGEMINAL NEURALGIA
     Dosage: 100 MILLIGRAM, QID
     Route: 065
  5. GABAPENTIN. [Suspect]
     Active Substance: GABAPENTIN
     Indication: TRIGEMINAL NEURALGIA
     Dosage: 1200 MILLIGRAM, TID
     Route: 065
  6. AMITRIPTYLINE [Suspect]
     Active Substance: AMITRIPTYLINE
     Indication: TRIGEMINAL NEURALGIA
     Dosage: UNK
     Route: 065
  7. CAPSAICIN CREAM [Suspect]
     Active Substance: CAPSAICIN
     Indication: TRIGEMINAL NEURALGIA
     Dosage: UNK
     Route: 065

REACTIONS (1)
  - Drug ineffective [Unknown]
